FAERS Safety Report 5766513-5 (Version None)
Quarter: 2008Q2

REPORT INFORMATION
  Report Type: 
  Country: None (occurrence: None)
  Receive Date: 20080612
  Receipt Date: 20080529
  Transmission Date: 20081010
  Serious: Yes (Other)
  Sender: FDA-Public Use
  Company Number: BR-ROCHE-567917

PATIENT
  Age: 22 Year
  Sex: Female

DRUGS (2)
  1. ROACUTAN [Suspect]
     Indication: ACNE
     Route: 048
     Dates: start: 20030101
  2. ROACUTAN [Suspect]
     Route: 048
     Dates: start: 20050101

REACTIONS (1)
  - POLYCYSTIC OVARIES [None]
